FAERS Safety Report 8567805-7 (Version None)
Quarter: 2012Q3

REPORT INFORMATION
  Report Type: 
  Country: None (occurrence: None)
  Receive Date: 20120803
  Receipt Date: 20120723
  Transmission Date: 20120928
  Serious: Yes (Hospitalization, Other)
  Sender: FDA-Public Use
  Company Number: DK-ROCHE-1091854

PATIENT
  Sex: Male

DRUGS (2)
  1. CELLCEPT [Suspect]
     Indication: PROPHYLAXIS AGAINST TRANSPLANT REJECTION
     Dates: start: 20061106
  2. NEORAL [Suspect]
     Indication: PROPHYLAXIS AGAINST TRANSPLANT REJECTION
     Dates: start: 20061106

REACTIONS (9)
  - FATIGUE [None]
  - COGNITIVE DISORDER [None]
  - ASTHENIA [None]
  - QUALITY OF LIFE DECREASED [None]
  - PARKINSON'S DISEASE [None]
  - CEREBRAL THROMBOSIS [None]
  - BALANCE DISORDER [None]
  - PNEUMOCYSTIS JIROVECI PNEUMONIA [None]
  - PYREXIA [None]
